FAERS Safety Report 25700354 (Version 1)
Quarter: 2025Q3

REPORT INFORMATION
  Report Type: Spontaneous
  Country: EU (occurrence: EU)
  Receive Date: 20250819
  Receipt Date: 20250819
  Transmission Date: 20251021
  Serious: Yes (Other)
  Sender: ROCHE
  Company Number: None

PATIENT
  Age: 7 Year
  Sex: Female
  Weight: 24.1 kg

DRUGS (38)
  1. GLOFITAMAB [Suspect]
     Active Substance: GLOFITAMAB
     Indication: B-cell lymphoma
     Route: 042
     Dates: start: 20230818
  2. GLOFITAMAB [Suspect]
     Active Substance: GLOFITAMAB
     Route: 042
     Dates: start: 20230828
  3. OBINUTUZUMAB [Suspect]
     Active Substance: OBINUTUZUMAB
     Indication: B-cell lymphoma
     Route: 042
     Dates: start: 20230810
  4. OBINUTUZUMAB [Suspect]
     Active Substance: OBINUTUZUMAB
     Route: 042
     Dates: start: 20230809
  5. OBINUTUZUMAB [Suspect]
     Active Substance: OBINUTUZUMAB
     Route: 042
     Dates: start: 20230828
  6. MESNA [Suspect]
     Active Substance: MESNA
     Indication: B-cell lymphoma
     Dosage: 530  MG, QD
     Route: 042
     Dates: start: 20230811
  7. MESNA [Suspect]
     Active Substance: MESNA
     Dosage: ON 14/AUG/2023 RECEIVED MOST RECENT DOSE OF STUDY DRUG PRIOR TO EVENT.DOSE LAST STUDY DRUG ADMIN PRI
     Route: 042
     Dates: start: 20230811
  8. METHOTREXATE [Suspect]
     Active Substance: METHOTREXATE
     Indication: B-cell lymphoma
     Route: 029
     Dates: start: 20230811
  9. HYDROCORTISONE [Suspect]
     Active Substance: HYDROCORTISONE
     Indication: B-cell lymphoma
     Route: 029
     Dates: start: 20230811
  10. HYDROCORTISONE [Suspect]
     Active Substance: HYDROCORTISONE
     Dosage: 7.5 MILLIGRAM, QD
     Route: 048
     Dates: start: 20230405
  11. LENOGRASTIM [Suspect]
     Active Substance: LENOGRASTIM
     Indication: B-cell lymphoma
     Route: 042
     Dates: start: 20230814
  12. LENOGRASTIM [Suspect]
     Active Substance: LENOGRASTIM
     Route: 042
     Dates: start: 20230815
  13. CARBOPLATIN [Suspect]
     Active Substance: CARBOPLATIN
     Indication: B-cell lymphoma
     Dosage: 565 MILLIGRAM
     Route: 042
     Dates: start: 20230811
  14. CYTARABINE [Suspect]
     Active Substance: CYTARABINE
     Indication: B-cell lymphoma
     Route: 029
     Dates: start: 20230811
  15. ETOPOSIDE [Suspect]
     Active Substance: ETOPOSIDE
     Indication: B-cell lymphoma
     Dosage: ON 13/AUG/2023 RECEIVED MOST RECENT DOSE (90 MG) OF STUDY DRUG PRIOR TO EVENT
     Route: 042
     Dates: start: 20230811
  16. IFOSFAMIDE [Suspect]
     Active Substance: IFOSFAMIDE
     Indication: B-cell lymphoma
     Dosage: ON 13/AUG/2023, RECEIVED MOST RECENT DOSE OF IFOSFAMIDE PRIOR TO EVENT
     Route: 042
     Dates: start: 20230811
  17. ALOXI [Concomitant]
     Active Substance: PALONOSETRON HYDROCHLORIDE
     Indication: Vomiting
     Dosage: 236 MICROGRAM, QD
     Route: 042
     Dates: end: 20230815
  18. AMOXICILLIN [Concomitant]
     Active Substance: AMOXICILLIN
     Indication: Gingivitis
     Dosage: 750 MILLIGRAM, TID
     Route: 048
     Dates: start: 20230822, end: 20230828
  19. ATARAX [Concomitant]
     Active Substance: HYDROXYZINE HYDROCHLORIDE
     Indication: Anxiety
     Dosage: 20 MILLIGRAM, QD
     Route: 048
     Dates: start: 20230812, end: 20230818
  20. BACTRIM [Concomitant]
     Active Substance: SULFAMETHOXAZOLE\TRIMETHOPRIM
     Indication: Prophylaxis
     Dosage: 3 TIMES PER WEEK
     Dates: start: 20230907
  21. BACTRIM [Concomitant]
     Active Substance: SULFAMETHOXAZOLE\TRIMETHOPRIM
     Dosage: 600 MILLIGRAM, 3 TIMES/WEEK
     Route: 048
     Dates: start: 202302, end: 20230907
  22. DEXAMETHASONE [Concomitant]
     Active Substance: DEXAMETHASONE
     Indication: Product used for unknown indication
     Dosage: 12 MILLIGRAM, QD
     Route: 042
     Dates: start: 20230809, end: 20230810
  23. DEXAMETHASONE [Concomitant]
     Active Substance: DEXAMETHASONE
     Dosage: 12 MILLIGRAM, QD
     Route: 042
     Dates: start: 20230818, end: 20230818
  24. DEXAMETHASONE [Concomitant]
     Active Substance: DEXAMETHASONE
     Dosage: 10 MILLIGRAM, QD
     Route: 042
     Dates: start: 20230828, end: 20230828
  25. DOLIPRANE [Concomitant]
     Active Substance: ACETAMINOPHEN
     Indication: Pain
     Dates: start: 20230809, end: 20230828
  26. DOLIPRANE [Concomitant]
     Active Substance: ACETAMINOPHEN
     Dosage: 300 MILLIGRAM, QD
     Route: 048
     Dates: start: 20230810, end: 20230813
  27. HALDOL [Concomitant]
     Active Substance: HALOPERIDOL
     Indication: Vomiting
     Dosage: 10 GTT DROPS, QD
     Route: 048
     Dates: start: 20230811, end: 20230811
  28. HYDROCORTISONE [Concomitant]
     Active Substance: HYDROCORTISONE
     Indication: Product used for unknown indication
     Dosage: 5 MILLIGRAM
     Route: 048
  29. HYDROXYZINE [Concomitant]
     Active Substance: HYDROXYZINE HYDROCHLORIDE
     Indication: Product used for unknown indication
     Dates: start: 20230812, end: 20230818
  30. INTRATECT [Concomitant]
     Active Substance: HUMAN IMMUNOGLOBULIN G
     Indication: Product used for unknown indication
     Dosage: 10 GRAM, QD
     Route: 042
     Dates: start: 20230822, end: 20230822
  31. OXYGEN [Concomitant]
     Active Substance: OXYGEN
     Indication: Product used for unknown indication
  32. ACETAMINOPHEN [Concomitant]
     Active Substance: ACETAMINOPHEN
     Indication: Product used for unknown indication
     Dosage: 350 MILLIGRAM, QD
     Route: 048
     Dates: start: 20230809, end: 20230810
  33. ACETAMINOPHEN [Concomitant]
     Active Substance: ACETAMINOPHEN
     Dosage: 350 MILLIGRAM, QD
     Route: 050
     Dates: start: 20230818, end: 20230818
  34. ACETAMINOPHEN [Concomitant]
     Active Substance: ACETAMINOPHEN
     Dosage: 350 MILLIGRAM, QD
     Route: 050
     Dates: start: 20230828, end: 20230828
  35. POLARAMINE [Concomitant]
     Active Substance: DEXCHLORPHENIRAMINE MALEATE
     Indication: Product used for unknown indication
     Dosage: 5 MILLIGRAM, QD
     Route: 042
     Dates: start: 20230809, end: 20230810
  36. POLARAMINE [Concomitant]
     Active Substance: DEXCHLORPHENIRAMINE MALEATE
     Dosage: 5 MILLIGRAM, QD
     Route: 042
     Dates: start: 20230818, end: 20230818
  37. POLARAMINE [Concomitant]
     Active Substance: DEXCHLORPHENIRAMINE MALEATE
     Dosage: 5 MILLIGRAM, QD
     Route: 042
     Dates: start: 20230828, end: 20230828
  38. RASBURICASE [Concomitant]
     Active Substance: RASBURICASE
     Indication: Product used for unknown indication
     Dosage: 4.7 MILLIGRAM, QD
     Route: 042
     Dates: start: 20230809, end: 20230810

REACTIONS (1)
  - Cytokine release syndrome [Recovered/Resolved]

NARRATIVE: CASE EVENT DATE: 20230829
